FAERS Safety Report 6279345-9 (Version None)
Quarter: 2009Q3

REPORT INFORMATION
  Report Type: 
  Country: None (occurrence: None)
  Receive Date: 20090723
  Receipt Date: 20081107
  Transmission Date: 20100115
  Serious: Yes (Hospitalization)
  Sender: FDA-Public Use
  Company Number: US-AMGEN-KDL318518

PATIENT
  Sex: Female
  Weight: 48.1 kg

DRUGS (13)
  1. PROCRIT [Suspect]
     Indication: ANAEMIA OF MALIGNANT DISEASE
     Route: 058
     Dates: start: 20080710, end: 20080904
  2. GEMCITABINE [Suspect]
     Route: 042
     Dates: start: 20080502
  3. ATENOLOL [Concomitant]
     Route: 048
     Dates: start: 20080829
  4. DURAGESIC-100 [Concomitant]
     Route: 062
     Dates: start: 20080731
  5. LACTULOSE [Concomitant]
     Route: 048
     Dates: start: 20080731
  6. PERIACTIN [Concomitant]
     Route: 048
     Dates: start: 20080731
  7. LORTAB [Concomitant]
     Route: 048
     Dates: start: 20080508
  8. CREON [Concomitant]
     Route: 048
     Dates: start: 20080509
  9. NEXIUM [Concomitant]
     Route: 048
     Dates: start: 20080201
  10. NASONEX [Concomitant]
     Route: 045
     Dates: start: 20050101
  11. AMBIEN [Concomitant]
     Route: 048
     Dates: start: 20070101
  12. LEVOTHYROXINE SODIUM [Concomitant]
     Route: 048
     Dates: start: 19950101
  13. NORVASC [Concomitant]
     Route: 048
     Dates: start: 19950101, end: 20080829

REACTIONS (1)
  - TRANSIENT ISCHAEMIC ATTACK [None]
